FAERS Safety Report 8069613-2 (Version None)
Quarter: 2012Q1

REPORT INFORMATION
  Report Type: 
  Country: None (occurrence: None)
  Receive Date: 20120125
  Receipt Date: 20120120
  Transmission Date: 20120608
  Serious: Yes (Hospitalization)
  Sender: FDA-Public Use
  Company Number: US-BAYER-2012-007406

PATIENT
  Age: 73 Year
  Sex: Male
  Weight: 84.354 kg

DRUGS (15)
  1. LEVOTHYROXINE SODIUM [Concomitant]
     Indication: HYPOTHYROIDISM
     Dosage: 0.015 MG, QD
     Dates: start: 20070101
  2. LOVAZA [Concomitant]
     Indication: SUPPLEMENTATION THERAPY
     Dosage: 2000 MG, QD
     Route: 048
     Dates: start: 19800101
  3. PRILOSEC [Concomitant]
     Indication: GASTROOESOPHAGEAL REFLUX DISEASE
     Dosage: UNK
     Route: 048
     Dates: start: 20090101
  4. DOXAZOSIN MESYLATE [Concomitant]
     Indication: BENIGN PROSTATIC HYPERPLASIA
     Dosage: 8 MG, UNK
     Route: 048
     Dates: start: 19940101
  5. LOPERAMIDE [Concomitant]
     Indication: DIARRHOEA
     Dosage: 2 MG, QD
     Dates: start: 20110228
  6. MULTI-VITAMIN [Concomitant]
     Indication: SUPPLEMENTATION THERAPY
     Dosage: 1 TAB QD
     Dates: start: 19710101
  7. SAW PALMETTO [Concomitant]
     Indication: SUPPLEMENTATION THERAPY
     Dosage: 0.01 MG, QD
     Route: 048
     Dates: start: 19950101
  8. NEXAVAR [Suspect]
     Indication: THYROID CANCER
     Dosage: UNK
     Dates: start: 20111002
  9. NEXAVAR [Suspect]
     Dosage: 600 MG DAILY
     Route: 048
     Dates: start: 20120112, end: 20120119
  10. POTASSIUM PHOSPHATES [Concomitant]
     Indication: SUPPLEMENTATION THERAPY
     Dosage: 10 MEQ, QD
     Route: 048
     Dates: start: 20110501
  11. CALCIUM [Concomitant]
     Indication: SUPPLEMENTATION THERAPY
     Dosage: 2 TABS (500MG - 4000 DAILY
     Dates: start: 20080601
  12. DIOVAN [Concomitant]
     Indication: HYPERTENSION
     Dosage: 160-25 MG QD
     Route: 048
     Dates: start: 19950101
  13. ASPIRIN [Concomitant]
     Dosage: 81 MG, QD
     Dates: start: 20000101
  14. TESTOSTERONE [Concomitant]
     Indication: ORGANIC ERECTILE DYSFUNCTION
     Dosage: UNK
     Route: 061
     Dates: start: 20050101
  15. PLACEBO [Suspect]
     Indication: THYROID CANCER
     Dosage: UNK
     Dates: end: 20111002

REACTIONS (1)
  - APPENDICECTOMY [None]
